FAERS Safety Report 6101712-4 (Version None)
Quarter: 2009Q1

REPORT INFORMATION
  Report Type: 
  Country: None (occurrence: None)
  Receive Date: 20090304
  Receipt Date: 20090227
  Transmission Date: 20090719
  Serious: Yes (Other)
  Sender: FDA-Public Use
  Company Number: A0763026A

PATIENT
  Age: 57 Year
  Sex: Female

DRUGS (2)
  1. SUMATRIPTAN SUCCINATE [Suspect]
     Indication: MIGRAINE
     Dosage: 100MG PER DAY
     Route: 048
     Dates: start: 20090105, end: 20090107
  2. NORTRIPTYLINE HCL [Concomitant]

REACTIONS (9)
  - ASTHENIA [None]
  - CHEST PAIN [None]
  - DYSPNOEA [None]
  - FEELING ABNORMAL [None]
  - GAIT DISTURBANCE [None]
  - MYOCARDIAL INFARCTION [None]
  - PRODUCT QUALITY ISSUE [None]
  - RASH [None]
  - RASH ERYTHEMATOUS [None]
